FAERS Safety Report 6305435-8 (Version None)
Quarter: 2009Q3

REPORT INFORMATION
  Report Type: 
  Country: None (occurrence: None)
  Receive Date: 20090807
  Receipt Date: 20090731
  Transmission Date: 20100115
  Serious: Yes (Death)
  Sender: FDA-Public Use
  Company Number: 2009009098

PATIENT
  Age: 57 Year
  Sex: Male
  Weight: 60 kg

DRUGS (4)
  1. EFFENTORA [Suspect]
     Indication: BREAKTHROUGH PAIN
     Dosage: 2400 MCG (600 MCG,4 IN 1 D)
     Dates: start: 20090625, end: 20090723
  2. DURAGESIC-100 [Concomitant]
  3. SEVEDOL (ACETYLSALICYLIC ACID, CAFFEINE, PARACETAMOL) [Concomitant]
  4. EFECTIN (VENLAFAXINE) [Concomitant]

REACTIONS (1)
  - PULMONARY HAEMORRHAGE [None]
